FAERS Safety Report 15627574 (Version 1)
Quarter: 2018Q4

REPORT INFORMATION
  Report Type: Spontaneous
  Country: JP (occurrence: JP)
  Receive Date: 20181116
  Receipt Date: 20181116
  Transmission Date: 20190205
  Serious: Yes (Other)
  Sender: FDA-Public Use
  Company Number: PHJP2018JP019111

PATIENT
  Sex: Female

DRUGS (2)
  1. ANPLAG [Suspect]
     Active Substance: SARPOGRELATE
     Indication: PRODUCT USED FOR UNKNOWN INDICATION
     Dosage: UNK
     Route: 048
  2. LOCHOL [Suspect]
     Active Substance: FLUVASTATIN SODIUM
     Indication: PRODUCT USED FOR UNKNOWN INDICATION
     Dosage: UNK
     Route: 048

REACTIONS (7)
  - Constipation [Unknown]
  - Urticaria [Unknown]
  - Stomatitis [Unknown]
  - Asthenia [Unknown]
  - Abdominal discomfort [Unknown]
  - Thirst [Unknown]
  - Haematochezia [Unknown]
